FAERS Safety Report 23568408 (Version 1)
Quarter: 2024Q1

REPORT INFORMATION
  Report Type: Spontaneous
  Country: US (occurrence: US)
  Receive Date: 20240227
  Receipt Date: 20240227
  Transmission Date: 20240410
  Serious: No
  Sender: FDA-Public Use
  Company Number: ENDG23-06806

PATIENT
  Sex: Male

DRUGS (1)
  1. VARENICLINE [Suspect]
     Active Substance: VARENICLINE
     Indication: Smoking cessation therapy
     Dosage: UNK UNKNOWN, UNKNOWN
     Route: 065

REACTIONS (6)
  - Genital burning sensation [Unknown]
  - Penile burning sensation [Unknown]
  - Paraesthesia [Unknown]
  - Genital paraesthesia [Unknown]
  - Asthenia [Unknown]
  - Headache [Unknown]
